FAERS Safety Report 8823751 (Version 1)
Quarter: 2012Q4

REPORT INFORMATION
  Report Type: 
  Country: US (occurrence: US)
  Receive Date: 20121003
  Receipt Date: 20121003
  Transmission Date: 20130627
  Serious: No
  Sender: FDA-Public Use
  Company Number: US-ASTRAZENECA-2012SE74377

PATIENT
  Age: 44 Year
  Sex: Female

DRUGS (4)
  1. CRESTOR [Suspect]
     Route: 048
     Dates: start: 2006
  2. ATENOLOL [Suspect]
     Indication: CARDIAC DISORDER
     Route: 048
  3. LISINOPRIL [Suspect]
     Indication: CARDIAC DISORDER
     Route: 048
  4. LIPITOR [Concomitant]

REACTIONS (6)
  - Tinnitus [Unknown]
  - Tinnitus [Unknown]
  - Hearing impaired [Unknown]
  - Tinnitus [Unknown]
  - Drug intolerance [Unknown]
  - Drug ineffective [Unknown]
